FAERS Safety Report 7470944-5 (Version None)
Quarter: 2011Q2

REPORT INFORMATION
  Report Type: 
  Country: None (occurrence: None)
  Receive Date: 20110510
  Receipt Date: 20110504
  Transmission Date: 20111010
  Serious: No
  Sender: FDA-Public Use
  Company Number: US-PFIZER INC-2011096349

PATIENT
  Age: 21 Year
  Sex: Male

DRUGS (1)
  1. GENOTROPIN [Suspect]
     Indication: BLOOD GROWTH HORMONE
     Dosage: UNK

REACTIONS (4)
  - DRUG INEFFECTIVE [None]
  - WAIST CIRCUMFERENCE INCREASED [None]
  - FEAR OF NEEDLES [None]
  - CONDITION AGGRAVATED [None]
